FAERS Safety Report 4576972-1 (Version None)
Quarter: 2005Q1

REPORT INFORMATION
  Report Type: 
  Country: None (occurrence: None)
  Receive Date: 20050208
  Receipt Date: 20040604
  Transmission Date: 20050727
  Serious: Yes (Hospitalization)
  Sender: FDA-Public Use
  Company Number: 212180

PATIENT
  Age: 60 Year

DRUGS (2)
  1. BEVACIZUMAB (BEVACIZUMAB) PWDR + SOLVENT, INFSUION SOLN, 100MG [Suspect]
     Indication: LIP AND/OR ORAL CAVITY CANCER
     Dosage: 145 MG, Q3W, INTRAVENOUS
     Route: 042
     Dates: start: 20040113, end: 20040504
  2. ERLOTINIB (ERLOTINIB, ERLOTINIB)TABLET, 150MG [Suspect]
     Indication: LIP AND/OR ORAL CAVITY CANCER
     Dosage: 150 MG, QD, ORAL
     Route: 048
     Dates: start: 20040113, end: 20040519

REACTIONS (6)
  - INFECTION [None]
  - METASTASES TO LARYNX [None]
  - METASTASES TO LUNG [None]
  - PURULENCE [None]
  - SKIN ODOUR ABNORMAL [None]
  - ULCER [None]
